FAERS Safety Report 9119041 (Version 1)
Quarter: 2013Q1

REPORT INFORMATION
  Report Type: Spontaneous
  Country: DE (occurrence: DE)
  Receive Date: 20130226
  Receipt Date: 20130226
  Transmission Date: 20140127
  Serious: Yes (Other)
  Sender: FDA-Public Use
  Company Number: PHHY2013DE011371

PATIENT
  Age: 52 Year
  Sex: Female

DRUGS (7)
  1. XOLAIR [Suspect]
     Indication: ASTHMA
     Dosage: 375 IU/ML, EVERY TWO WEEKS
     Dates: start: 2000
  2. XOLAIR [Suspect]
     Dosage: 450 IU/ML,EVERY TWO WEEKS
     Dates: start: 201109, end: 201109
  3. XOLAIR [Suspect]
     Dosage: UNK UKN, UNK
     Dates: start: 201201
  4. FORADIL [Suspect]
     Indication: ASTHMA
     Dosage: 24 UG, QD
  5. PREDNISOLON [Concomitant]
     Dosage: 6 MG, QD
  6. PREDNISOLON [Concomitant]
     Dosage: 3.5 UNK, UNK
  7. FLUTIDE [Concomitant]

REACTIONS (8)
  - Asthma [Recovering/Resolving]
  - Nocturnal dyspnoea [Recovering/Resolving]
  - Pulmonary function test decreased [Recovering/Resolving]
  - Nasal polyps [Recovering/Resolving]
  - Decreased appetite [Recovering/Resolving]
  - Pruritus [Recovered/Resolved]
  - Urticaria [Recovered/Resolved]
  - Dyspnoea [Unknown]
